FAERS Safety Report 10206565 (Version 1)
Quarter: 2014Q2

REPORT INFORMATION
  Report Type: Report from Study
  Country: CA (occurrence: CA)
  Receive Date: 20140530
  Receipt Date: 20140530
  Transmission Date: 20141212
  Serious: Yes (Other)
  Sender: FDA-Public Use
  Company Number: CA-JNJFOC-20140515382

PATIENT
  Age: 48 Year
  Sex: Male
  Weight: 70.31 kg

DRUGS (1)
  1. SIMPONI [Suspect]
     Indication: ANKYLOSING SPONDYLITIS
     Dosage: PRE-FILLED SYRINGE
     Route: 058
     Dates: start: 201303, end: 2014

REACTIONS (1)
  - Prostate infection [Unknown]
